FAERS Safety Report 5902793-0 (Version None)
Quarter: 2008Q3

REPORT INFORMATION
  Report Type: 
  Country: None (occurrence: None)
  Receive Date: 20080929
  Receipt Date: 20080929
  Transmission Date: 20090109
  Serious: Yes (Other)
  Sender: FDA-Public Use
  Company Number: None

PATIENT
  Age: 48 Year
  Sex: Male
  Weight: 74.8435 kg

DRUGS (1)
  1. ALLOPURINOL [Suspect]
     Indication: GOUT
     Dosage: 300MG DAILY PO
     Route: 048
     Dates: start: 20080915, end: 20080922

REACTIONS (4)
  - CONDITION AGGRAVATED [None]
  - EXPIRED DRUG ADMINISTERED [None]
  - GOUT [None]
  - PHARMACEUTICAL PRODUCT COMPLAINT [None]
